FAERS Safety Report 8096349-4 (Version None)
Quarter: 2012Q1

REPORT INFORMATION
  Report Type: 
  Country: None (occurrence: None)
  Receive Date: 20120131
  Receipt Date: 20120123
  Transmission Date: 20120608
  Serious: Yes (Hospitalization, Other)
  Sender: FDA-Public Use
  Company Number: PHHY2012PL005909

PATIENT
  Age: 44 Year
  Sex: Male

DRUGS (3)
  1. VANCOMYCIN [Suspect]
     Dosage: 2 G, BID
  2. VANCOMYCIN [Suspect]
     Indication: ENDOCARDITIS
     Dosage: 1.5 G, BID
  3. GENTAMICIN [Concomitant]
     Indication: ENDOCARDITIS
     Dosage: 80 MG, TID
     Route: 042

REACTIONS (8)
  - OLIGURIA [None]
  - EJECTION FRACTION DECREASED [None]
  - PYREXIA [None]
  - CARDIAC ASTHMA [None]
  - DYSPNOEA [None]
  - CHILLS [None]
  - GENERAL PHYSICAL HEALTH DETERIORATION [None]
  - RENAL FAILURE ACUTE [None]
